FAERS Safety Report 9858018 (Version 1)
Quarter: 2014Q1

REPORT INFORMATION
  Report Type: Spontaneous
  Country: AT (occurrence: AT)
  Receive Date: 20140131
  Receipt Date: 20140131
  Transmission Date: 20141002
  Serious: Yes (Hospitalization)
  Sender: FDA-Public Use
  Company Number: AT-JNJFOC-20140115297

PATIENT
  Age: 75 Year
  Sex: Female

DRUGS (6)
  1. XARELTO [Suspect]
     Indication: CEREBROVASCULAR ACCIDENT PROPHYLAXIS
     Route: 048
  2. XARELTO [Suspect]
     Indication: ATRIAL FIBRILLATION
     Route: 048
  3. GLUCOPHAGE [Concomitant]
     Route: 065
  4. LANITOP [Concomitant]
     Route: 065
  5. LASIX [Concomitant]
     Route: 065
  6. SPIRONOLACTON [Concomitant]
     Route: 065

REACTIONS (1)
  - Pulmonary embolism [Recovered/Resolved]
